FAERS Safety Report 6205434-0 (Version None)
Quarter: 2009Q2

REPORT INFORMATION
  Report Type: 
  Country: None (occurrence: None)
  Receive Date: 20090527
  Receipt Date: 20090324
  Transmission Date: 20091009
  Serious: No
  Sender: FDA-Public Use
  Company Number: US-ABBOTT-09P-163-0564252-00

PATIENT
  Sex: Male
  Weight: 86.26 kg

DRUGS (5)
  1. SIMCOR [Suspect]
     Indication: HIGH DENSITY LIPOPROTEIN DECREASED
     Dosage: 500/20 MG ONCE A DAY
     Route: 048
     Dates: start: 20090322
  2. SIMCOR [Suspect]
     Indication: BLOOD TRIGLYCERIDES INCREASED
  3. DIOVAN [Concomitant]
     Indication: HYPERTENSION
  4. NEXIUM [Concomitant]
     Indication: DYSPHAGIA
  5. UNKNOWN ARTHRITIS PILL [Concomitant]
     Indication: ARTHRITIS

REACTIONS (2)
  - ABDOMINAL DISCOMFORT [None]
  - NAUSEA [None]
